FAERS Safety Report 6958421-9 (Version None)
Quarter: 2010Q3

REPORT INFORMATION
  Report Type: 
  Country: None (occurrence: None)
  Receive Date: 20100827
  Receipt Date: 20100827
  Transmission Date: 20110219
  Serious: Yes (Hospitalization, Other)
  Sender: FDA-Public Use
  Company Number: None

PATIENT

DRUGS (1)
  1. COPAXONE [Suspect]
     Indication: MULTIPLE SCLEROSIS
     Dosage: 20 MG ONCE DAILY SUB-Q
     Route: 058
     Dates: start: 20090327, end: 20100823

REACTIONS (6)
  - CHEST PAIN [None]
  - FEELING COLD [None]
  - LIP SWELLING [None]
  - SWELLING FACE [None]
  - TREMOR [None]
  - VOMITING [None]
